FAERS Safety Report 18364964 (Version 1)
Quarter: 2020Q4

REPORT INFORMATION
  Report Type: Spontaneous
  Country: BR (occurrence: BR)
  Receive Date: 20201009
  Receipt Date: 20201009
  Transmission Date: 20210114
  Serious: Yes (Other)
  Sender: FDA-Public Use
  Company Number: BR-TEVA-2020-BR-1836904

PATIENT
  Age: 66 Year

DRUGS (1)
  1. TEVAOXALI [Suspect]
     Active Substance: OXALIPLATIN
     Route: 065

REACTIONS (2)
  - Oxygen saturation decreased [Unknown]
  - Flushing [Unknown]

NARRATIVE: CASE EVENT DATE: 20200828
